FAERS Safety Report 11006315 (Version 1)
Quarter: 2015Q2

REPORT INFORMATION
  Report Type: Report from Study
  Country: DE (occurrence: DE)
  Receive Date: 20150409
  Receipt Date: 20150409
  Transmission Date: 20150821
  Serious: Yes (Death, Other)
  Sender: FDA-Public Use
  Company Number: DE-MYLANLABS-2015M1011611

PATIENT

DRUGS (8)
  1. CHLORPROTHIXENE [Concomitant]
     Active Substance: CHLORPROTHIXENE
     Route: 065
  2. NOSCAPINE [Concomitant]
     Active Substance: NOSCAPINE
     Route: 065
  3. PAPAVERINE [Concomitant]
     Active Substance: PAPAVERINE
     Route: 065
  4. DIAZEPAM. [Concomitant]
     Active Substance: DIAZEPAM
     Route: 065
  5. DILTIAZEM [Suspect]
     Active Substance: DILTIAZEM
     Route: 050
  6. LEVAMISOLE [Suspect]
     Active Substance: LEVAMISOLE
     Route: 050
  7. METHADONE [Concomitant]
     Active Substance: METHADONE HYDROCHLORIDE
     Route: 065
  8. CAFFEINE. [Concomitant]
     Active Substance: CAFFEINE
     Route: 065

REACTIONS (1)
  - Death [Fatal]
